FAERS Safety Report 15659500 (Version 1)
Quarter: 2018Q4

REPORT INFORMATION
  Report Type: Spontaneous
  Country: US (occurrence: US)
  Receive Date: 20181127
  Receipt Date: 20181127
  Transmission Date: 20190205
  Serious: No
  Sender: FDA-Public Use
  Company Number: US-TEVA-2018-US-979242

PATIENT
  Sex: Female

DRUGS (2)
  1. CLONAZEPAM TEVA [Suspect]
     Active Substance: CLONAZEPAM
     Dosage: 1 MG TABLET IN THE MORNING AND EVENING AND SHE WOULD SPLIT THE TABLET IN HALF FOR HER AFTERNOON DOSE
     Route: 065
  2. CLONAZEPAM TEVA [Suspect]
     Active Substance: CLONAZEPAM
     Dosage: TWO TABLETS IN THE MORNING, ONE TABLET IN THE AFTERNOON AND TWO IN THE EVENING
     Route: 065

REACTIONS (2)
  - Gastric disorder [Unknown]
  - Tongue discomfort [Unknown]
